FAERS Safety Report 10236345 (Version 1)
Quarter: 2014Q2

REPORT INFORMATION
  Report Type: Spontaneous
  Country: US (occurrence: US)
  Receive Date: 20140613
  Receipt Date: 20140613
  Transmission Date: 20141212
  Serious: No
  Sender: FDA-Public Use
  Company Number: US-GLAXOSMITHKLINE-A1043919A

PATIENT
  Age: 41 Year
  Sex: Female

DRUGS (4)
  1. TREXIMET [Suspect]
     Indication: MIGRAINE
     Dates: start: 2011
  2. METOPROLOL [Concomitant]
  3. JUNEL [Concomitant]
  4. ALLEGRA [Concomitant]

REACTIONS (3)
  - Diarrhoea [Recovered/Resolved]
  - Malaise [Recovered/Resolved]
  - Ill-defined disorder [Recovered/Resolved]
